FAERS Safety Report 7704023-6 (Version None)
Quarter: 2011Q3

REPORT INFORMATION
  Report Type: 
  Country: None (occurrence: None)
  Receive Date: 20110823
  Receipt Date: 20110819
  Transmission Date: 20111222
  Serious: Yes (Death)
  Sender: FDA-Public Use
  Company Number: US-ASTRAZENECA-2011SE38864

PATIENT
  Age: 81 Year
  Sex: Male
  Weight: 102.5 kg

DRUGS (8)
  1. ZOCOR [Concomitant]
  2. VIMOVO [Suspect]
     Indication: ARTHRITIS
     Dosage: 375-20 MG, TWICE A DAY, 30 MINUTES BEFORE MEALS
     Route: 048
     Dates: start: 20110524, end: 20110603
  3. VIMOVO [Suspect]
     Indication: MUSCULOSKELETAL CHEST PAIN
     Dosage: 375-20 MG, TWICE A DAY, 30 MINUTES BEFORE MEALS
     Route: 048
     Dates: start: 20110524, end: 20110603
  4. FINASTERIDE [Concomitant]
  5. NISOLDIPINE [Concomitant]
  6. VIMOVO [Suspect]
     Indication: PAIN IN EXTREMITY
     Dosage: 375-20 MG, TWICE A DAY, 30 MINUTES BEFORE MEALS
     Route: 048
     Dates: start: 20110524, end: 20110603
  7. ASPIRIN [Concomitant]
  8. DOXAZOSIN MESYLATE [Concomitant]

REACTIONS (3)
  - LYMPHOMA [None]
  - SEDATION [None]
  - SOMNOLENCE [None]
